FAERS Safety Report 19716205 (Version 11)
Quarter: 2023Q1

REPORT INFORMATION
  Report Type: Spontaneous
  Country: DE (occurrence: DE)
  Receive Date: 20210819
  Receipt Date: 20230227
  Transmission Date: 20230418
  Serious: Yes (Other)
  Sender: FDA-Public Use
  Company Number: DE-TAKEDA-2021TUS042126

PATIENT
  Age: 36 Year
  Sex: Female

DRUGS (36)
  1. CANDESARTAN [Suspect]
     Active Substance: CANDESARTAN
     Indication: Hypertension
     Dosage: 16 MILLIGRAM, ONCE A DAY
     Route: 048
  2. PANTOPRAZOLE [Suspect]
     Active Substance: PANTOPRAZOLE
     Indication: Gastric disorder
     Dosage: 20 MILLIGRAM ONCE A DAY
     Route: 048
  3. PANTOPRAZOLE [Suspect]
     Active Substance: PANTOPRAZOLE
     Indication: Gastrointestinal disorder prophylaxis
  4. CORTISONE [Suspect]
     Active Substance: CORTISONE
     Indication: Product used for unknown indication
     Dosage: 5 MILLIGRAM, ONCE A DAY (5 MILLIGRAM, QD)
     Route: 048
  5. CORTISONE [Suspect]
     Active Substance: CORTISONE
     Dosage: 5 MILLIGRAM, ONCE A DAY
     Route: 048
     Dates: start: 20210726
  6. HYDROCORTISONE ACETATE [Suspect]
     Active Substance: HYDROCORTISONE ACETATE
     Indication: Product used for unknown indication
     Dosage: 5 MILLIGRAM, ONCE A DAY
     Route: 048
     Dates: start: 20210726
  7. HYDROCORTISONE ACETATE [Suspect]
     Active Substance: HYDROCORTISONE ACETATE
     Dosage: 5 MILLIGRAM, ONCE A DAY
     Route: 048
  8. NATPARA (PARATHYROID HORMONE) [Suspect]
     Active Substance: PARATHYROID HORMONE
     Indication: Hypoparathyroidism
     Dosage: 25 MICROGRAM, ONCE A DAY
     Route: 058
     Dates: start: 20170928
  9. NATPARA (PARATHYROID HORMONE) [Suspect]
     Active Substance: PARATHYROID HORMONE
     Dosage: 25 MICROGRAM, ONCE A DAY
     Route: 058
     Dates: start: 20170928
  10. NATPARA (PARATHYROID HORMONE) [Suspect]
     Active Substance: PARATHYROID HORMONE
     Dosage: 25 MILLIGRAM, ONCE A DAY
     Route: 058
     Dates: start: 20170928
  11. NATPARA (PARATHYROID HORMONE) [Suspect]
     Active Substance: PARATHYROID HORMONE
     Dosage: 50 MICROGRAM, ONCE A DAY
     Route: 058
     Dates: start: 20170928
  12. NATPARA (PARATHYROID HORMONE) [Suspect]
     Active Substance: PARATHYROID HORMONE
     Dosage: 100 MICROGRAM, ONCE A DAY (50 MICROGRAM, BID (INJECTION PEN,MIXING DEVICE,NEEDLES)
     Route: 058
     Dates: start: 20170928
  13. PARATHYROID HORMONE [Suspect]
     Active Substance: PARATHYROID HORMONE
     Indication: Hypoparathyroidism
     Dosage: 25 MICROGRAM, ONCE A DAY
     Route: 058
     Dates: start: 20170928
  14. PARATHYROID HORMONE [Suspect]
     Active Substance: PARATHYROID HORMONE
     Dosage: 25 MICROGRAM, ONCE A DAY
     Route: 058
     Dates: start: 20170928
  15. PARATHYROID HORMONE [Suspect]
     Active Substance: PARATHYROID HORMONE
     Dosage: 50 MICROGRAM, ONCE A DAY
     Route: 058
     Dates: start: 20170928
  16. PARATHYROID HORMONE [Suspect]
     Active Substance: PARATHYROID HORMONE
     Dosage: 100 MICROGRAM, ONCE A DAY
     Route: 058
     Dates: start: 20170928
  17. ADALIMUMAB [Concomitant]
     Active Substance: ADALIMUMAB
     Indication: Hypokalaemia
     Dosage: 40 MILLIGRAM, Q2WEEKS
     Route: 048
  18. ADALIMUMAB [Concomitant]
     Active Substance: ADALIMUMAB
     Indication: Crohn^s disease
     Dosage: UNK, ONCE A DAY
     Route: 048
  19. ADALIMUMAB [Concomitant]
     Active Substance: ADALIMUMAB
     Indication: Crohn^s disease
     Dosage: 40 MILLIGRAM, CYCLICAL (EVERY 2WEEKS)
     Route: 058
  20. ADALIMUMAB [Concomitant]
     Active Substance: ADALIMUMAB
     Indication: Hypokalaemia
  21. CALCITRAT [Concomitant]
     Indication: Hypoparathyroidism
     Dosage: UNK, ONCE A DAY
     Route: 048
  22. CALCITRIOL [Concomitant]
     Active Substance: CALCITRIOL
     Indication: Hypoparathyroidism
     Dosage: UNK
     Route: 048
  23. CALCIUM [Concomitant]
     Active Substance: CALCIUM
     Indication: Hypoparathyroidism
     Dosage: UNK
     Route: 048
  24. CALCIUM CARBONATE [Concomitant]
     Active Substance: CALCIUM CARBONATE
     Indication: Hypoparathyroidism
     Dosage: UNK
     Route: 048
  25. CHOLECALCIFEROL [Concomitant]
     Active Substance: CHOLECALCIFEROL
     Indication: Hypoparathyroidism
     Dosage: UNK, ONCE A DAY
     Route: 065
  26. CALCIUM CARBONATE\CHOLECALCIFEROL [Concomitant]
     Active Substance: CALCIUM CARBONATE\CHOLECALCIFEROL
     Indication: Hypoparathyroidism
     Dosage: UNK, ONCE A DAY
     Route: 048
  27. KALIUM-R [Concomitant]
     Indication: Hypokalaemia
     Dosage: 9 DOSAGE FORM, ONCE A DAY
     Route: 048
  28. LEVOTHYROXINE SODIUM [Concomitant]
     Active Substance: LEVOTHYROXINE SODIUM
     Indication: Thyroidectomy
     Dosage: 150 MICROGRAM, ONCE A DAY
     Route: 048
  29. LEVOTHYROXINE SODIUM [Concomitant]
     Active Substance: LEVOTHYROXINE SODIUM
     Indication: Thyroidectomy
     Dosage: 150 MICROGRAM, ONCE A DAY
     Route: 048
  30. MAGNESIUM [Concomitant]
     Active Substance: MAGNESIUM
     Indication: Hypoparathyroidism
     Dosage: 4-5 SACHETS, ONCE A DAY
     Route: 048
  31. MAGNESIUM [Concomitant]
     Active Substance: MAGNESIUM
     Dosage: UNK, ONCE A DAY
     Route: 048
  32. POTASSIUM CHLORIDE [Concomitant]
     Active Substance: POTASSIUM CHLORIDE
     Indication: Hypokalaemia
     Dosage: UNK
     Route: 048
  33. RIBOFLAVIN 5^-PHOSPHATE SODIUM ANHYDROUS [Concomitant]
     Active Substance: RIBOFLAVIN 5^-PHOSPHATE SODIUM ANHYDROUS
     Indication: Product used for unknown indication
     Dosage: UNK
     Route: 048
  34. SPIRONOLACTONE [Concomitant]
     Active Substance: SPIRONOLACTONE
     Indication: Oedema
     Dosage: 25 MILLIGRAM, ONCE A DAY
     Route: 048
  35. XIPAMIDE [Concomitant]
     Active Substance: XIPAMIDE
     Indication: Hypertension
     Dosage: 20 MILLIGRAM, ONCE A DAY
     Route: 048
  36. XIPAMIDE [Concomitant]
     Active Substance: XIPAMIDE
     Indication: Oedema

REACTIONS (15)
  - Abortion spontaneous [Recovered/Resolved]
  - Hypocalcaemia [Recovered/Resolved]
  - Maternal exposure during pregnancy [Recovered/Resolved]
  - Diarrhoea [Recovered/Resolved]
  - Pregnancy [Recovered/Resolved]
  - Paraesthesia [Recovered/Resolved]
  - Therapy interrupted [Recovered/Resolved]
  - Weight increased [Recovered/Resolved]
  - Weight decreased [Recovered/Resolved]
  - Bone metabolism biochemical marker increased [Not Recovered/Not Resolved]
  - Influenza [Recovered/Resolved]
  - Premature delivery [Recovered/Resolved]
  - Maternal exposure during breast feeding [Recovered/Resolved]
  - Device issue [Recovered/Resolved]
  - Off label use [Not Recovered/Not Resolved]

NARRATIVE: CASE EVENT DATE: 20170928
